FAERS Safety Report 16778889 (Version 2)
Quarter: 2019Q3

REPORT INFORMATION
  Report Type: Report from Study
  Country: ES (occurrence: ES)
  Receive Date: 20190906
  Receipt Date: 20190920
  Transmission Date: 20191005
  Serious: Yes (Other)
  Sender: FDA-Public Use
  Company Number: ES-AEGERION PHARMACEUTICAL, INC-AEGR004462

PATIENT

DRUGS (1)
  1. METRELEPTIN [Suspect]
     Active Substance: METRELEPTIN
     Indication: PRODUCT USED FOR UNKNOWN INDICATION
     Dosage: UNK
     Dates: start: 20000801

REACTIONS (5)
  - Drug ineffective [Unknown]
  - Focal segmental glomerulosclerosis [Unknown]
  - Pulmonary fibrosis [Unknown]
  - Chronic kidney disease [Unknown]
  - Hepatic cirrhosis [Unknown]
